FAERS Safety Report 6647614-6 (Version None)
Quarter: 2010Q1

REPORT INFORMATION
  Report Type: 
  Country: None (occurrence: None)
  Receive Date: 20100323
  Receipt Date: 20100323
  Transmission Date: 20100710
  Serious: Yes (Life-Threatening, Hospitalization)
  Sender: FDA-Public Use
  Company Number: None

PATIENT
  Age: 39 Year
  Sex: Male
  Weight: 68.0396 kg

DRUGS (2)
  1. MINOCYCLINE UNKNOWN UNKNOWN [Suspect]
     Indication: ACNE
     Dosage: DAILY PO, APPROXIMATELY 3 YEARS
     Route: 048
  2. MINOCYCLINE UNKNOWN UNKNOWN [Suspect]
     Indication: ROSACEA
     Dosage: DAILY PO, APPROXIMATELY 3 YEARS
     Route: 048

REACTIONS (5)
  - CEREBROVASCULAR ACCIDENT [None]
  - COAGULOPATHY [None]
  - LUPUS-LIKE SYNDROME [None]
  - NEUROPATHY PERIPHERAL [None]
  - VISION BLURRED [None]
